FAERS Safety Report 4919261-5 (Version None)
Quarter: 2006Q1

REPORT INFORMATION
  Report Type: 
  Country: None (occurrence: None)
  Receive Date: 20060215
  Receipt Date: 20060202
  Transmission Date: 20060701
  Serious: Yes (Other)
  Sender: FDA-Public Use
  Company Number: 2006S1000029

PATIENT
  Age: 64 Year
  Sex: Female

DRUGS (4)
  1. CUBICIN [Suspect]
     Indication: ARTHRITIS BACTERIAL
     Dosage: 8 MG/ KG; Q24H;
     Dates: start: 20040101, end: 20040101
  2. VANCOMYCIN [Concomitant]
  3. RIFAMPIN [Concomitant]
  4. LINEZOLID [Concomitant]

REACTIONS (4)
  - LEG AMPUTATION [None]
  - OSTEONECROSIS [None]
  - POSTOPERATIVE WOUND INFECTION [None]
  - SEPTIC ARTHRITIS STAPHYLOCOCCAL [None]
